FAERS Safety Report 16494976 (Version 2)
Quarter: 2019Q3

REPORT INFORMATION
  Report Type: Other
  Country: US (occurrence: US)
  Receive Date: 20190628
  Receipt Date: 20190722
  Transmission Date: 20191004
  Serious: Yes (Hospitalization, Other)
  Sender: FDA-Public Use
  Company Number: US-AMAG PHARMACEUTICALS, INC.-AMAG201902336

PATIENT
  Age: 0 Day
  Sex: Female
  Weight: 1.55 kg

DRUGS (1)
  1. MAKENA [Suspect]
     Active Substance: HYDROXYPROGESTERONE CAPROATE
     Indication: FOETAL EXPOSURE DURING PREGNANCY
     Dosage: 250MG/ML, WEEKLY
     Route: 064
     Dates: start: 20190129, end: 20190221

REACTIONS (10)
  - Bradycardia neonatal [Recovered/Resolved]
  - Premature baby [Recovered/Resolved]
  - Macrosomia [Not Recovered/Not Resolved]
  - Late metabolic acidosis of newborn [Recovered/Resolved]
  - Anaemia neonatal [Recovered/Resolved]
  - Retinopathy of prematurity [Recovered/Resolved]
  - Malnutrition [Recovered/Resolved]
  - Thrombocytosis [Recovered/Resolved]
  - Candida nappy rash [Recovered/Resolved]
  - Neonatal respiratory distress syndrome [Recovered/Resolved]

NARRATIVE: CASE EVENT DATE: 20190228
